FAERS Safety Report 18348025 (Version 1)
Quarter: 2020Q4

REPORT INFORMATION
  Report Type: Spontaneous
  Country: KR (occurrence: KR)
  Receive Date: 20201006
  Receipt Date: 20201006
  Transmission Date: 20210114
  Serious: Yes (Hospitalization, Other)
  Sender: FDA-Public Use
  Company Number: KR-MACLEODS PHARMACEUTICALS US LTD-MAC2020028269

PATIENT

DRUGS (3)
  1. TENOFOVIR 300MG [Suspect]
     Active Substance: TENOFOVIR DISOPROXIL
     Indication: CHRONIC HEPATITIS B
     Dosage: 300 MILLIGRAM, QD
     Route: 065
  2. LAMIVUDINE. [Suspect]
     Active Substance: LAMIVUDINE
     Indication: CHRONIC HEPATITIS B
     Dosage: UNK
     Route: 065
     Dates: start: 1998, end: 2004
  3. ADEFOVIR [Suspect]
     Active Substance: ADEFOVIR
     Indication: CHRONIC HEPATITIS C
     Dosage: 10 MILLIGRAM, QD
     Route: 065
     Dates: start: 2004, end: 2011

REACTIONS (6)
  - Pathological fracture [Recovered/Resolved]
  - Renal tubular dysfunction [Recovered/Resolved]
  - Nephropathy toxic [Recovered/Resolved]
  - Hypophosphataemic osteomalacia [Recovered/Resolved]
  - Drug resistance [Unknown]
  - Fanconi syndrome [Recovered/Resolved]

NARRATIVE: CASE EVENT DATE: 2004
